FAERS Safety Report 12389394 (Version 1)
Quarter: 2016Q2

REPORT INFORMATION
  Report Type: Spontaneous
  Country: JP (occurrence: JP)
  Receive Date: 20160520
  Receipt Date: 20160520
  Transmission Date: 20160815
  Serious: Yes (Other)
  Sender: FDA-Public Use
  Company Number: JP-GLAXOSMITHKLINE-JP2016JPN068919

PATIENT
  Age: 78 Year
  Sex: Male
  Weight: 61 kg

DRUGS (8)
  1. LANSOPRAZOLE. [Suspect]
     Active Substance: LANSOPRAZOLE
     Route: 048
  2. AMLODIPINE [Suspect]
     Active Substance: AMLODIPINE BESYLATE
     Route: 048
  3. SERETIDE [Suspect]
     Active Substance: FLUTICASONE PROPIONATE\SALMETEROL XINAFOATE
     Route: 055
  4. CANDESARTAN [Suspect]
     Active Substance: CANDESARTAN
     Route: 048
  5. ZYLORIC [Suspect]
     Active Substance: ALLOPURINOL
     Route: 048
  6. BEZAFIBRATE [Suspect]
     Active Substance: BEZAFIBRATE
     Route: 048
  7. PRANLUKAST [Suspect]
     Active Substance: PRANLUKAST
     Route: 048
  8. TIOTROPIUM [Suspect]
     Active Substance: TIOTROPIUM
     Route: 055

REACTIONS (3)
  - Cholangioadenoma [Unknown]
  - Hepatic mass [Unknown]
  - Aspergilloma [Unknown]
